FAERS Safety Report 6880263-3 (Version None)
Quarter: 2010Q3

REPORT INFORMATION
  Report Type: 
  Country: None (occurrence: None)
  Receive Date: 20100728
  Receipt Date: 20100721
  Transmission Date: 20110219
  Serious: Yes (Hospitalization)
  Sender: FDA-Public Use
  Company Number: US-AMGEN-QUU423095

PATIENT
  Sex: Female
  Weight: 40 kg

DRUGS (7)
  1. ENBREL [Suspect]
     Indication: PRODUCT USED FOR UNKNOWN INDICATION
     Route: 058
     Dates: start: 20070201, end: 20091101
  2. INFLIXIMAB [Suspect]
     Route: 042
     Dates: start: 20050115, end: 20050615
  3. METHOTREXATE [Concomitant]
     Dates: start: 19960101, end: 20070101
  4. PLAQUENIL [Concomitant]
  5. PREDNISONE [Concomitant]
  6. ACYCLOVIR [Concomitant]
  7. LANSOPRAZOLE [Concomitant]

REACTIONS (2)
  - ADENOMATOUS POLYPOSIS COLI [None]
  - COLON CANCER [None]
